FAERS Safety Report 17189068 (Version 1)
Quarter: 2019Q4

REPORT INFORMATION
  Report Type: Spontaneous
  Country: US (occurrence: US)
  Receive Date: 20191223
  Receipt Date: 20191223
  Transmission Date: 20200122
  Serious: No
  Sender: FDA-Public Use
  Company Number: US-AUROBINDO-AUR-APL-2019-019486

PATIENT

DRUGS (1)
  1. BUPIVACAINE HYDROCHLORIDE INJECTION USP 0.5% (5 MG/ML) [Suspect]
     Active Substance: BUPIVACAINE HYDROCHLORIDE
     Indication: DENTAL OPERATION
     Dosage: 0.7 MILLILITER
     Route: 065
     Dates: start: 20190319

REACTIONS (2)
  - Injection site infection [Unknown]
  - Nerve block [Unknown]
